FAERS Safety Report 9563036 (Version 1)
Quarter: 2013Q3

REPORT INFORMATION
  Report Type: Spontaneous
  Country: US (occurrence: US)
  Receive Date: 20130927
  Receipt Date: 20130927
  Transmission Date: 20140515
  Serious: Yes (Other)
  Sender: FDA-Public Use
  Company Number: US-BRISTOL-MYERS SQUIBB COMPANY-16837270

PATIENT
  Age: 62 Year
  Sex: Male
  Weight: 109 kg

DRUGS (2)
  1. ONGLYZA TABS 5 MG [Suspect]
  2. GLYBURIDE + METFORMIN HCL [Concomitant]

REACTIONS (1)
  - Pancreatitis [Unknown]
